FAERS Safety Report 8395483-9 (Version None)
Quarter: 2012Q2

REPORT INFORMATION
  Report Type: 
  Country: None (occurrence: None)
  Receive Date: 20120530
  Receipt Date: 20110407
  Transmission Date: 20120825
  Serious: No
  Sender: FDA-Public Use
  Company Number: US-GLAXOSMITHKLINE-A0921832A

PATIENT
  Age: 62 Year
  Sex: Female

DRUGS (3)
  1. DIURETIC [Concomitant]
  2. ATENOLOL [Concomitant]
  3. VENTOLIN [Suspect]
     Indication: COUGH
     Dosage: 2PUFF FOUR TIMES PER DAY
     Route: 055
     Dates: start: 20110318, end: 20110320

REACTIONS (3)
  - NAUSEA [None]
  - ABDOMINAL PAIN UPPER [None]
  - HEADACHE [None]
